FAERS Safety Report 13626420 (Version 2)
Quarter: 2017Q3

REPORT INFORMATION
  Report Type: Spontaneous
  Country: US (occurrence: US)
  Receive Date: 20170608
  Receipt Date: 20170719
  Transmission Date: 20171127
  Serious: Yes (Hospitalization, Other)
  Sender: FDA-Public Use
  Company Number: US-GLAXOSMITHKLINE-US2017GSK087662

PATIENT
  Age: 60 Year
  Sex: Female

DRUGS (5)
  1. COUMADIN [Concomitant]
     Active Substance: WARFARIN SODIUM
  2. FLOLAN [Suspect]
     Active Substance: EPOPROSTENOL SODIUM
     Indication: PULMONARY HYPERTENSION
     Dosage: 19 DF, CO
     Route: 042
     Dates: start: 20131028
  3. FLOLAN [Suspect]
     Active Substance: EPOPROSTENOL SODIUM
     Indication: PULMONARY HYPERTENSION
     Dosage: UNK, CO
     Dates: start: 20170216
  4. LETAIRIS [Concomitant]
     Active Substance: AMBRISENTAN
  5. SILDENAFIL CITRATE. [Concomitant]
     Active Substance: SILDENAFIL CITRATE

REACTIONS (4)
  - Nasopharyngitis [Unknown]
  - Respiratory failure [Unknown]
  - Visual impairment [Unknown]
  - Oxygen saturation decreased [Unknown]

NARRATIVE: CASE EVENT DATE: 20170624
